FAERS Safety Report 5367701-2 (Version None)
Quarter: 2007Q2

REPORT INFORMATION
  Report Type: 
  Country: None (occurrence: None)
  Receive Date: 20070622
  Receipt Date: 20070315
  Transmission Date: 20071010
  Serious: No
  Sender: FDA-Public Use
  Company Number: US-ASTRAZENECA-2007UW05014

PATIENT
  Age: 65 Year
  Sex: Male
  Weight: 39.9 kg

DRUGS (7)
  1. PULMICORT RESPULES [Suspect]
     Indication: EMPHYSEMA
     Route: 055
  2. DUONEB [Concomitant]
  3. THEOPHYLLINE [Concomitant]
  4. PREDNISONE TAB [Concomitant]
  5. PREVACID [Concomitant]
  6. XANAX [Concomitant]
  7. MAXAIR [Concomitant]

REACTIONS (2)
  - HOT FLUSH [None]
  - NERVOUSNESS [None]
